FAERS Safety Report 4603824-0 (Version None)
Quarter: 2005Q1

REPORT INFORMATION
  Report Type: 
  Country: None (occurrence: None)
  Receive Date: 20050308
  Receipt Date: 20050225
  Transmission Date: 20050727
  Serious: Yes (Other)
  Sender: FDA-Public Use
  Company Number: 200510841BCC

PATIENT
  Age: 52 Year
  Sex: Female
  Weight: 77.1115 kg

DRUGS (4)
  1. ALKA SELTZER MORNING RELIEF [Suspect]
     Dosage: 1000/130 MG, BID, ORAL
     Route: 048
     Dates: start: 20050204, end: 20050209
  2. AUGMENTIN '125' [Concomitant]
  3. FLEXERIL [Concomitant]
  4. AMITRIPTYLINE [Concomitant]

REACTIONS (2)
  - HORNER'S SYNDROME [None]
  - PUPILS UNEQUAL [None]
